FAERS Safety Report 8624457-5 (Version None)
Quarter: 2012Q3

REPORT INFORMATION
  Report Type: 
  Country: None (occurrence: None)
  Receive Date: 20120827
  Receipt Date: 20120815
  Transmission Date: 20120928
  Serious: Yes (Hospitalization)
  Sender: FDA-Public Use
  Company Number: JP-PFIZER INC-2012185441

PATIENT
  Age: 70 Year
  Sex: Female
  Weight: 53.5 kg

DRUGS (14)
  1. BLINDED THERAPY [Suspect]
     Dosage: DOUBLE BLIND (5MG OR PLACEBO) (1 IN 1 D)
     Route: 048
     Dates: start: 20111020
  2. MAGMITT [Suspect]
     Indication: CONSTIPATION
     Dosage: 1650 MG, 3X/DAY
     Route: 048
     Dates: start: 20070101
  3. CARBIDOPA [Suspect]
     Indication: PARKINSON'S DISEASE
     Dosage: UNK
     Route: 048
     Dates: start: 20070710
  4. BROTIZOLAM [Suspect]
     Indication: INSOMNIA
     Dosage: 0.25 MG, 1X/DAY
     Route: 048
     Dates: start: 20110414
  5. FAMOTIDINE [Suspect]
     Indication: PROPHYLAXIS
     Dosage: 20 MG, 1X/DAY
     Route: 048
     Dates: start: 20110506
  6. DIGOXIN [Concomitant]
     Dosage: UNK
     Route: 048
     Dates: start: 20120315
  7. BLINDED THERAPY [Suspect]
     Indication: PARKINSON'S DISEASE
     Dosage: DOUBLE BLIND (3MG OR PLACEBO) (1 IN 1 D)
     Route: 048
     Dates: start: 20111012, end: 20111019
  8. CABERGOLINE [Suspect]
     Indication: PARKINSON'S DISEASE
     Dosage: 0.5 MG, 1X/DAY
     Route: 048
  9. COMTAN [Suspect]
     Indication: PARKINSON'S DISEASE
     Dosage: 100 MG, 3X/DAY
     Route: 048
     Dates: start: 20090615
  10. CLONAZEPAM [Suspect]
     Indication: INSOMNIA
     Dosage: 1 MG, 1X/DAY
     Route: 048
     Dates: start: 20070101
  11. TIZANIDINE HYDROCHLORIDE [Suspect]
     Indication: PARKINSON'S DISEASE
     Dosage: 1 MG, 3X/DAY
     Route: 048
     Dates: start: 20071220
  12. GASMOTIN [Suspect]
     Indication: PROPHYLAXIS
     Dosage: 5 MG, 2X/DAY
     Route: 048
  13. FLURBIPROFEN [Suspect]
     Indication: PARKINSON'S DISEASE
     Dosage: UNK
     Route: 048
     Dates: start: 20080619
  14. SYMMETREL [Suspect]
     Indication: PARKINSON'S DISEASE
     Dosage: 50 MG, 2X/DAY
     Route: 048
     Dates: start: 20091221

REACTIONS (1)
  - CORONARY ARTERY DISEASE [None]
